FAERS Safety Report 7986875-8 (Version None)
Quarter: 2011Q4

REPORT INFORMATION
  Report Type: 
  Country: None (occurrence: None)
  Receive Date: 20111216
  Receipt Date: 20111214
  Transmission Date: 20120403
  Serious: Yes (Hospitalization, Other)
  Sender: FDA-Public Use
  Company Number: FR-BAYER-2011-120629

PATIENT
  Age: 63 Year
  Sex: Female

DRUGS (6)
  1. DESLORATADINE [Concomitant]
     Indication: ALLERGY PROPHYLAXIS
  2. GLUCAGON [Concomitant]
  3. MEDROL [Concomitant]
     Indication: ALLERGY PROPHYLAXIS
  4. ULTRAVIST 150 [Suspect]
     Indication: ANGIOGRAM PULMONARY
     Dosage: 80 ML, UNK
     Dates: start: 20111213
  5. ATARAX [Concomitant]
     Indication: ALLERGY PROPHYLAXIS
  6. INSULIN INJECTION [Concomitant]
     Dosage: UNK

REACTIONS (4)
  - OROPHARYNGEAL DISCOMFORT [None]
  - BLOOD GLUCOSE FLUCTUATION [None]
  - URTICARIA [None]
  - COUGH [None]
